FAERS Safety Report 9696732 (Version 1)
Quarter: 2013Q4

REPORT INFORMATION
  Report Type: Spontaneous
  Country: US (occurrence: US)
  Receive Date: 20131119
  Receipt Date: 20131119
  Transmission Date: 20140711
  Serious: No
  Sender: FDA-Public Use
  Company Number: US-GILEAD-2007-0014514

PATIENT
  Age: 45 Year
  Sex: Male
  Weight: 83.91 kg

DRUGS (13)
  1. LETAIRIS [Suspect]
     Indication: PULMONARY ARTERIAL HYPERTENSION
     Route: 048
     Dates: start: 20071121
  2. OXYGEN [Concomitant]
     Route: 045
  3. ZOLOFT [Concomitant]
     Route: 048
  4. COUMADIN [Concomitant]
     Route: 048
  5. COUMADIN [Concomitant]
     Route: 048
  6. CADUET [Concomitant]
     Route: 048
  7. NEURONTIN [Concomitant]
     Route: 048
  8. POTASSIUM CHLORIDE [Concomitant]
     Route: 048
  9. STERILE DILUENT FOR FLOLAN [Concomitant]
     Dosage: CONTINUOUS
     Route: 042
  10. FLOLAN [Concomitant]
     Dosage: CONTINUOUS
     Route: 042
  11. FUROSEMIDE [Concomitant]
     Route: 048
  12. NORVASC [Concomitant]
     Route: 048
  13. DARVOCET-N [Concomitant]
     Dosage: EVERY 4 TO 6 HOURS
     Route: 048

REACTIONS (3)
  - Dyspnoea [Unknown]
  - Headache [Unknown]
  - Nasal congestion [Unknown]
